FAERS Safety Report 18651389 (Version 3)
Quarter: 2021Q4

REPORT INFORMATION
  Report Type: Report from Study
  Country: DE (occurrence: DE)
  Receive Date: 20201222
  Receipt Date: 20211224
  Transmission Date: 20220303
  Serious: Yes (Other)
  Sender: FDA-Public Use
  Company Number: DE-BRISTOL-MYERS SQUIBB COMPANY-BMS-2017-068147

PATIENT
  Age: 77 Year
  Sex: Male

DRUGS (38)
  1. NIVOLUMAB [Suspect]
     Active Substance: NIVOLUMAB
     Indication: Non-small cell lung cancer
     Dosage: 3 MILLIGRAM/KILOGRAM, Q2WK
     Route: 042
     Dates: start: 20161221
  2. AZILECT [Concomitant]
     Active Substance: RASAGILINE MESYLATE
     Indication: Product used for unknown indication
     Dosage: 1 MILLIGRAM
     Route: 065
  3. BISOPROLOL FUMARATE [Concomitant]
     Active Substance: BISOPROLOL FUMARATE
     Indication: Cardiovascular disorder
     Dosage: 10 MILLIGRAM, BID (MORNING ANG NIGHT)
     Route: 065
     Dates: start: 20170131, end: 20180129
  4. BISOPROLOL FUMARATE [Concomitant]
     Active Substance: BISOPROLOL FUMARATE
     Dosage: 5 MILLIGRAM, QD
     Route: 065
     Dates: start: 20170131, end: 20190220
  5. PANTOZOL [Concomitant]
     Active Substance: PANTOPRAZOLE SODIUM
     Indication: Prophylaxis
     Dosage: 20 MILLIGRAM, QD (AT NIGHT)
     Route: 065
     Dates: end: 20171107
  6. TORSEMIDE [Concomitant]
     Active Substance: TORSEMIDE
     Indication: Cardiovascular disorder
     Dosage: 20 MILLIGRAM, QD (EVERY MORNING)
     Route: 065
     Dates: start: 20170131, end: 201704
  7. TORSEMIDE [Concomitant]
     Active Substance: TORSEMIDE
     Indication: Gastrointestinal disorder
     Dosage: 5 MILLIGRAM
     Route: 065
     Dates: start: 201704, end: 20180129
  8. TORSEMIDE [Concomitant]
     Active Substance: TORSEMIDE
     Dosage: 15 MILLIGRAM
     Route: 065
     Dates: start: 201704, end: 20180129
  9. TORSEMIDE [Concomitant]
     Active Substance: TORSEMIDE
     Dosage: 5 MILLIGRAM
     Route: 065
     Dates: start: 20180130, end: 20190320
  10. TORSEMIDE [Concomitant]
     Active Substance: TORSEMIDE
     Dosage: 5 MILLIGRAM/D 1, 10MG/D2, 5 MILLIGRAM/D 3, 10MG/D4
     Route: 065
     Dates: start: 20190321, end: 20210901
  11. TORSEMIDE [Concomitant]
     Active Substance: TORSEMIDE
     Dosage: 10MG-5MG-0
     Route: 065
     Dates: start: 20210902
  12. METILDIGOXIN [Concomitant]
     Active Substance: METILDIGOXIN
     Indication: Cardiovascular disorder
     Dosage: 0.1 MILLIGRAM, QD (EVERY MORNING)
     Route: 065
     Dates: end: 201704
  13. TILIDINE HYDROCHLORIDE [Concomitant]
     Active Substance: TILIDINE HYDROCHLORIDE
     Indication: Malignant neoplasm progression
     Dosage: 200 MILLIGRAM
     Route: 065
     Dates: end: 201704
  14. ELIQUIS [Concomitant]
     Active Substance: APIXABAN
     Indication: Prophylaxis
     Dosage: 5 MILLIGRAM, BID (MORNING AND NIGHT)
     Route: 065
     Dates: start: 20170131, end: 20190220
  15. ELIQUIS [Concomitant]
     Active Substance: APIXABAN
     Dosage: 2.5 MILLIGRAM, BID
     Route: 065
     Dates: start: 20210719
  16. NEUPRO [Concomitant]
     Active Substance: ROTIGOTINE
     Indication: Prophylaxis
     Dosage: 2 MILLIGRAM, QD
     Route: 065
     Dates: start: 20170803, end: 20180129
  17. NEUPRO [Concomitant]
     Active Substance: ROTIGOTINE
     Dosage: 4 MILLIGRAM
     Route: 065
     Dates: start: 20180131
  18. CHOLECALCIFEROL [Concomitant]
     Active Substance: CHOLECALCIFEROL
     Indication: Prophylaxis
     Dosage: 1000 IE
     Route: 065
     Dates: start: 201704, end: 20190220
  19. DIGITOXIN [Concomitant]
     Active Substance: DIGITOXIN
     Indication: Cardiovascular disorder
     Dosage: 0.07 MILLIGRAM, QD
     Route: 065
     Dates: start: 201704, end: 20190220
  20. MIRABEGRON [Concomitant]
     Active Substance: MIRABEGRON
     Indication: Product used for unknown indication
     Dosage: 50 MILLIGRAM, QD
     Route: 065
     Dates: start: 20180130
  21. MIRABEGRON [Concomitant]
     Active Substance: MIRABEGRON
     Dosage: 50 MILLIGRAM, QD
     Route: 065
     Dates: start: 20190220
  22. CALCIUM CARBONATE\CHOLECALCIFEROL [Concomitant]
     Active Substance: CALCIUM CARBONATE\CHOLECALCIFEROL
     Indication: Product used for unknown indication
     Dosage: UNK
     Route: 065
     Dates: start: 20170827
  23. CARBIDOPA\LEVODOPA [Concomitant]
     Active Substance: CARBIDOPA\LEVODOPA
     Indication: Product used for unknown indication
     Dosage: 375 MILLIGRAM, TID
     Route: 065
     Dates: end: 20190220
  24. ACETAMINOPHEN\CAFFEINE\PROPYPHENAZONE [Concomitant]
     Active Substance: ACETAMINOPHEN\CAFFEINE\PROPYPHENAZONE
     Indication: Malignant neoplasm progression
     Dosage: 120 MILLIGRAM
     Route: 065
     Dates: end: 201704
  25. FERROUS GLYCINE SULFATE;FOLIC ACID [Concomitant]
     Dosage: 225 MILLIGRAM, QD
     Route: 065
     Dates: start: 201704, end: 20180129
  26. LEVODOPA [Concomitant]
     Active Substance: LEVODOPA
     Indication: Product used for unknown indication
     Dosage: 300 MILLIGRAM, TID
     Route: 065
     Dates: start: 20190221
  27. LEVODOPA [Concomitant]
     Active Substance: LEVODOPA
     Dosage: 100 MILLIGRAM
     Route: 065
     Dates: start: 20190221
  28. PREDNISOLONE [Concomitant]
     Active Substance: PREDNISOLONE
     Indication: Prophylaxis
     Dosage: 2.5 MILLIGRAM, QD
     Route: 065
     Dates: end: 20190220
  29. PREDNISOLONE [Concomitant]
     Active Substance: PREDNISOLONE
     Dosage: 2.5 MILLIGRAM, TID
     Route: 065
     Dates: start: 20190221, end: 20190310
  30. PREDNISOLONE [Concomitant]
     Active Substance: PREDNISOLONE
     Dosage: 2.5 MILLIGRAM
     Route: 065
     Dates: start: 20171211, end: 20180129
  31. PREDNISOLONE [Concomitant]
     Active Substance: PREDNISOLONE
     Dosage: 5 MILLIGRAM
     Route: 065
     Dates: start: 20180130
  32. CALCIUM [Concomitant]
     Active Substance: CALCIUM
     Indication: Product used for unknown indication
     Dosage: 150 MILLIGRAM
     Route: 065
     Dates: start: 20190221
  33. MIRABEGRON [Concomitant]
     Active Substance: MIRABEGRON
     Indication: Product used for unknown indication
     Dosage: 50 MILLIGRAM
     Route: 065
     Dates: end: 20190220
  34. DIGITOXIN [Concomitant]
     Active Substance: DIGITOXIN
     Indication: Product used for unknown indication
     Dosage: 0.07 MILLIGRAM
     Route: 065
     Dates: start: 201704, end: 20190220
  35. BISOPROLOL [Concomitant]
     Active Substance: BISOPROLOL
     Indication: Product used for unknown indication
     Dosage: 5 MILLIGRAM
     Route: 065
     Dates: end: 20190220
  36. KELTICAN [CYANOCOBALAMIN;FOLIC ACID;URIDINE TRIPHOSPHATE SODIUM] [Concomitant]
     Indication: Product used for unknown indication
     Dosage: 1-0-0
     Route: 065
     Dates: start: 20190221
  37. CLARITHROMYCIN [Concomitant]
     Active Substance: CLARITHROMYCIN
     Indication: Product used for unknown indication
     Dosage: 50 MILLIGRAM, TID
     Route: 065
     Dates: start: 20190221, end: 20210719
  38. CLARITHROMYCIN [Concomitant]
     Active Substance: CLARITHROMYCIN
     Dosage: 50 MG, 1-1-0
     Dates: start: 20210720

REACTIONS (17)
  - Colitis [Not Recovered/Not Resolved]
  - Anaemia [Recovered/Resolved]
  - Pruritus [Recovered/Resolved]
  - Gamma-glutamyltransferase increased [Recovered/Resolved]
  - General physical health deterioration [Recovered/Resolved]
  - C-reactive protein increased [Recovered/Resolved]
  - Parkinson^s disease [Not Recovered/Not Resolved]
  - Aspartate aminotransferase decreased [Recovered/Resolved]
  - Pyrexia [Recovered/Resolved]
  - Diarrhoea [Recovered/Resolved]
  - Blood creatinine increased [Not Recovered/Not Resolved]
  - Blood alkaline phosphatase increased [Recovered/Resolved]
  - Blood lactate dehydrogenase increased [Not Recovered/Not Resolved]
  - Neutrophil count increased [Recovered/Resolved]
  - Lymphocyte count decreased [Not Recovered/Not Resolved]
  - Aspartate aminotransferase increased [Recovered/Resolved]
  - Chills [Recovered/Resolved]

NARRATIVE: CASE EVENT DATE: 20161221
